FAERS Safety Report 6977614-8 (Version None)
Quarter: 2010Q3

REPORT INFORMATION
  Report Type: 
  Country: None (occurrence: None)
  Receive Date: 20100913
  Receipt Date: 20100902
  Transmission Date: 20110219
  Serious: Yes (Hospitalization)
  Sender: FDA-Public Use
  Company Number: US-BIOGENIDEC-2010BI023405

PATIENT
  Age: 44 Year
  Sex: Female
  Weight: 88 kg

DRUGS (1)
  1. AVONEX [Suspect]
     Indication: MULTIPLE SCLEROSIS
     Route: 030
     Dates: start: 20030702

REACTIONS (3)
  - ASTHENIA [None]
  - CELLULITIS [None]
  - CEREBROVASCULAR ACCIDENT [None]
